FAERS Safety Report 5960475-3 (Version None)
Quarter: 2008Q4

REPORT INFORMATION
  Report Type: 
  Country: None (occurrence: None)
  Receive Date: 20081118
  Receipt Date: 20081103
  Transmission Date: 20090506
  Serious: Yes (Hospitalization)
  Sender: FDA-Public Use
  Company Number: 1000001676

PATIENT
  Age: 52 Year
  Sex: Male

DRUGS (4)
  1. ESCITALOPRAM [Suspect]
     Dosage: 10 MG (10 MG), ORAL
     Route: 048
  2. UNSPECIFIED ANTIHYPERTENSIVS [Concomitant]
  3. UNSPECIFIED ANTIEMETICS [Concomitant]
  4. MULTIVITAMINS AND MINERAL SUPPLEMENT [Concomitant]

REACTIONS (13)
  - BIPOLAR DISORDER [None]
  - CATATONIA [None]
  - CENTRAL PONTINE MYELINOLYSIS [None]
  - CHEST DISCOMFORT [None]
  - DYSPHAGIA [None]
  - GENERAL PHYSICAL HEALTH DETERIORATION [None]
  - HYPERTENSION [None]
  - HYPOMANIA [None]
  - HYPONATRAEMIA [None]
  - NO THERAPEUTIC RESPONSE [None]
  - TREMOR [None]
  - URINARY INCONTINENCE [None]
  - VOMITING PROJECTILE [None]
